FAERS Safety Report 7371307-3 (Version None)
Quarter: 2011Q1

REPORT INFORMATION
  Report Type: 
  Country: None (occurrence: None)
  Receive Date: 20110321
  Receipt Date: 20110321
  Transmission Date: 20110831
  Serious: Yes (Other)
  Sender: FDA-Public Use
  Company Number: None

PATIENT
  Sex: Female
  Weight: 85.7298 kg

DRUGS (1)
  1. SAPHRIS [Suspect]
     Indication: BIPOLAR DISORDER
     Dosage: 5 MG FIST USE 9.PM. SL
     Route: 060
     Dates: start: 20110315, end: 20110315

REACTIONS (7)
  - RESTLESSNESS [None]
  - DYSPHAGIA [None]
  - CONFUSIONAL STATE [None]
  - INSOMNIA [None]
  - SOMNOLENCE [None]
  - ABASIA [None]
  - DISCOMFORT [None]
